FAERS Safety Report 4640280-0 (Version None)
Quarter: 2005Q2

REPORT INFORMATION
  Report Type: 
  Country: None (occurrence: None)
  Receive Date: 20050420
  Receipt Date: 20050407
  Transmission Date: 20051028
  Serious: Yes (Hospitalization)
  Sender: FDA-Public Use
  Company Number: FR-JNJFOC-20050403886

PATIENT
  Age: 77 Year
  Sex: Female

DRUGS (2)
  1. TOPALGIC [Suspect]
     Indication: DRUG USE FOR UNKNOWN INDICATION
     Route: 049
     Dates: start: 20050104, end: 20050115
  2. MONO TILDIEM [Suspect]
     Indication: DRUG USE FOR UNKNOWN INDICATION
     Route: 049

REACTIONS (5)
  - ACUTE GENERALISED EXANTHEMATOUS PUSTULOSIS [None]
  - DERMATITIS EXFOLIATIVE [None]
  - INFLAMMATION [None]
  - LIVER DISORDER [None]
  - PYREXIA [None]
